FAERS Safety Report 6326984-2 (Version None)
Quarter: 2009Q3

REPORT INFORMATION
  Report Type: 
  Country: None (occurrence: None)
  Receive Date: 20090821
  Receipt Date: 20090810
  Transmission Date: 20100115
  Serious: Yes (Other)
  Sender: FDA-Public Use
  Company Number: ADR12042009

PATIENT
  Age: 54 Year
  Sex: Male

DRUGS (1)
  1. PRAVASTATIN [Suspect]
     Indication: HYPERCHOLESTEROLAEMIA
     Dosage: 40 MG ORAL
     Route: 048

REACTIONS (1)
  - ANXIETY [None]
